FAERS Safety Report 10233872 (Version 1)
Quarter: 2014Q1

REPORT INFORMATION
  Report Type: Spontaneous
  Country: US (occurrence: None)
  Receive Date: 20140306
  Receipt Date: 20140306
  Transmission Date: 20141002
  Serious: Yes (Hospitalization)
  Sender: FDA-Public Use
  Company Number: 163-21880-13113757

PATIENT
  Age: 68 Year
  Sex: Male
  Weight: 113.4 kg

DRUGS (11)
  1. REVLIMID (LENALIDOMIDE) (10 MILLIGRAM, CAPSULES) [Suspect]
     Indication: PLASMA CELL MYELOMA
     Dosage: 10 MG, 28 IN 28 D, PO
     Route: 048
     Dates: start: 201101
  2. NEXIUM (ESOMEPRAZOLE) (UNKNOWN) [Concomitant]
  3. FLOMAX (TAMSULOSIN) (UNKNOWN) [Concomitant]
  4. LISINOPRIL (LISINOPRIL) (UNKNOWN) [Concomitant]
  5. ALLEGRA (FEXOFENADINE HYDROCHLORIDE) (UNKNOWN) [Concomitant]
  6. MAXALT (RIZATRIPTAN BENZOATE) (UNKNOWN) [Concomitant]
  7. CITRACAL PLUS (CALCIUM CITRATE W/COLECALCIFEROL) (UNKNOWN) [Concomitant]
  8. BENADRYL (DIPHENHYDRAMINE) (UNKNOWN) [Concomitant]
  9. DEXAMETHASONE (DEXAMETHASONE) (UNKNOWN) [Concomitant]
  10. XANAX (ALPRAZOLAM) (UNKNOWN) [Concomitant]
  11. MSM GLUCOSAMINE (GLUCOSAMINE W/METHYLSULFONYLMETHANE) (UNKNOWN) [Concomitant]

REACTIONS (1)
  - Thrombosis [None]
